FAERS Safety Report 7125759-4 (Version None)
Quarter: 2010Q4

REPORT INFORMATION
  Report Type: 
  Country: None (occurrence: None)
  Receive Date: 20101129
  Receipt Date: 20101117
  Transmission Date: 20110411
  Serious: Yes (Hospitalization)
  Sender: FDA-Public Use
  Company Number: B0684762A

PATIENT
  Sex: Female

DRUGS (7)
  1. VALACYCLOVIR HYDROCHLORIDE [Suspect]
     Dosage: 500MG TWICE PER DAY
     Route: 048
     Dates: start: 20100914, end: 20101110
  2. MODOPAR [Suspect]
     Indication: TREMOR
     Dosage: 62.5MG TWICE PER DAY
     Route: 048
     Dates: start: 20100914, end: 20101110
  3. SOLU-MEDROL [Concomitant]
     Dosage: 30MG PER DAY
     Route: 042
     Dates: start: 20100721
  4. NEORECORMON [Concomitant]
     Dosage: 30MCG WEEKLY
     Route: 058
  5. IMOVANE [Concomitant]
     Dosage: 7.5MG PER DAY
     Route: 048
  6. DELURSAN [Concomitant]
     Dosage: 250MG TWICE PER DAY
     Route: 048
  7. UMULINE [Concomitant]
     Route: 065

REACTIONS (3)
  - AGRANULOCYTOSIS [None]
  - CHILLS [None]
  - PYREXIA [None]
